FAERS Safety Report 20199321 (Version 1)
Quarter: 2021Q4

REPORT INFORMATION
  Report Type: Spontaneous
  Country: US (occurrence: None)
  Receive Date: 20211216
  Receipt Date: 20211216
  Transmission Date: 20220303
  Serious: Yes (Other)
  Sender: FDA-Public Use
  Company Number: None

PATIENT
  Age: 47 Year
  Sex: Female
  Weight: 95.23 kg

DRUGS (1)
  1. VEKLURY [Suspect]
     Active Substance: REMDESIVIR

REACTIONS (9)
  - Dyspnoea [None]
  - Recalled product administered [None]
  - Product contamination physical [None]
  - Abdominal pain [None]
  - Pneumoperitoneum [None]
  - Large intestine perforation [None]
  - Diverticulitis [None]
  - Pneumomediastinum [None]
  - General physical health deterioration [None]

NARRATIVE: CASE EVENT DATE: 20211114
